FAERS Safety Report 23500823 (Version 1)
Quarter: 2024Q1

REPORT INFORMATION
  Report Type: Spontaneous
  Country: CN (occurrence: CN)
  Receive Date: 20240208
  Receipt Date: 20240208
  Transmission Date: 20240409
  Serious: Yes (Other)
  Sender: FDA-Public Use
  Company Number: CN-Eisai-EC-2024-158741

PATIENT
  Age: 19 Year
  Sex: Female
  Weight: 45 kg

DRUGS (2)
  1. LENVIMA [Suspect]
     Active Substance: LENVATINIB
     Indication: Malignant fibrous histiocytoma
     Route: 048
     Dates: start: 20240116, end: 20240123
  2. PALBOCICLIB [Suspect]
     Active Substance: PALBOCICLIB
     Indication: Malignant fibrous histiocytoma
     Route: 048
     Dates: start: 20240116, end: 20240123

REACTIONS (2)
  - White blood cell count decreased [Recovered/Resolved]
  - Neutrophil count decreased [Recovered/Resolved]

NARRATIVE: CASE EVENT DATE: 20240123
